FAERS Safety Report 10297581 (Version 3)
Quarter: 2019Q1

REPORT INFORMATION
  Report Type: Spontaneous
  Country: US (occurrence: US)
  Receive Date: 20140711
  Receipt Date: 20190211
  Transmission Date: 20190417
  Serious: No
  Sender: FDA-Public Use
  Company Number: US-PFIZER INC-2014190891

PATIENT
  Age: 69 Year
  Sex: Female

DRUGS (14)
  1. CYMBALTA [Suspect]
     Active Substance: DULOXETINE HYDROCHLORIDE
     Dosage: UNK
  2. AMBIEN [Concomitant]
     Active Substance: ZOLPIDEM TARTRATE
     Dosage: UNK
  3. IBUPROFEN. [Suspect]
     Active Substance: IBUPROFEN
     Dosage: 10 MG, DAILY
  4. ADVAIR HFA [Suspect]
     Active Substance: FLUTICASONE PROPIONATE\SALMETEROL XINAFOATE
     Dosage: UNK
  5. PROVENTIL [Suspect]
     Active Substance: ALBUTEROL
     Dosage: UNK
  6. MOTRIN [Suspect]
     Active Substance: IBUPROFEN
     Dosage: UNK
  7. FLEXERIL [Concomitant]
     Active Substance: CYCLOBENZAPRINE HYDROCHLORIDE
     Dosage: UNK
  8. PREMARIN [Concomitant]
     Active Substance: ESTROGENS, CONJUGATED
     Dosage: 1.25 MG, ONCE DAILY
  9. ADVIL [Suspect]
     Active Substance: IBUPROFEN
     Dosage: UNK
  10. E-MYCIN [Suspect]
     Active Substance: ERYTHROMYCIN
     Dosage: UNK
  11. LYRICA [Suspect]
     Active Substance: PREGABALIN
     Dosage: UNK
  12. ERYTHROMYCIN. [Suspect]
     Active Substance: ERYTHROMYCIN
     Dosage: UNK
  13. DEMADEX [Suspect]
     Active Substance: TORSEMIDE
     Dosage: UNK
  14. SINGULAIR [Concomitant]
     Active Substance: MONTELUKAST SODIUM
     Dosage: UNK

REACTIONS (1)
  - Drug hypersensitivity [Unknown]
